FAERS Safety Report 9714196 (Version 1)
Quarter: 2013Q4

REPORT INFORMATION
  Report Type: Spontaneous
  Country: US (occurrence: US)
  Receive Date: 20131126
  Receipt Date: 20131126
  Transmission Date: 20140711
  Serious: No
  Sender: FDA-Public Use
  Company Number: US-GILEAD-2008-0019299

PATIENT
  Sex: Female
  Weight: 81.65 kg

DRUGS (14)
  1. LETAIRIS [Suspect]
     Indication: PULMONARY ARTERIAL HYPERTENSION
     Route: 048
     Dates: start: 20081031
  2. REVATIO [Concomitant]
     Route: 048
     Dates: end: 20080929
  3. LASIX [Concomitant]
     Route: 048
  4. METOLAZONE [Concomitant]
     Route: 048
  5. NORVASC [Concomitant]
     Route: 048
  6. AVAPRO [Concomitant]
     Route: 048
  7. HUMALOG [Concomitant]
     Dosage: 100 UNITS/ML
     Route: 058
  8. LANTUS [Concomitant]
     Route: 058
  9. ULTRAM [Concomitant]
     Route: 048
  10. XANAX [Concomitant]
     Route: 048
  11. AMBIEN [Concomitant]
     Dosage: AT BEDTIME
     Route: 048
  12. ASPIRIN [Concomitant]
     Route: 048
  13. NIFEREX [Concomitant]
     Route: 048
  14. POTASSIUM CHLORIDE [Concomitant]
     Route: 048

REACTIONS (5)
  - Throat irritation [None]
  - Chest discomfort [None]
  - Swelling [None]
  - Joint swelling [None]
  - Constipation [None]
